FAERS Safety Report 8553373-2 (Version None)
Quarter: 2012Q3

REPORT INFORMATION
  Report Type: 
  Country: None (occurrence: None)
  Receive Date: 20120731
  Receipt Date: 20120724
  Transmission Date: 20120928
  Serious: No
  Sender: FDA-Public Use
  Company Number: MX-ROCHE-1088695

PATIENT
  Age: 16 Year
  Sex: Female

DRUGS (7)
  1. ACTEMRA [Suspect]
     Dates: start: 20120301
  2. METHOTREXATE [Concomitant]
     Indication: PRODUCT USED FOR UNKNOWN INDICATION
     Dosage: STARTED BEFORE THERAPY WITH ACTEMRA
  3. ACTEMRA [Suspect]
     Indication: RHEUMATOID ARTHRITIS
     Route: 042
     Dates: start: 20091101, end: 20120301
  4. ACTEMRA [Suspect]
     Dates: start: 20120201
  5. HUMIRA [Suspect]
     Indication: PRODUCT USED FOR UNKNOWN INDICATION
     Dosage: DRUG STARTED AFTER AE.
  6. ACTEMRA [Suspect]
     Dates: start: 20120101
  7. ENBREL [Concomitant]
     Indication: PRODUCT USED FOR UNKNOWN INDICATION
     Dosage: STARTED BEFORE THERAPY WITH ACTEMRA

REACTIONS (3)
  - OEDEMA [None]
  - JUVENILE ARTHRITIS [None]
  - ARTHRITIS [None]
